FAERS Safety Report 21364639 (Version 1)
Quarter: 2022Q3

REPORT INFORMATION
  Report Type: Spontaneous
  Country: US (occurrence: US)
  Receive Date: 20220922
  Receipt Date: 20220922
  Transmission Date: 20221026
  Serious: Yes (Other)
  Sender: FDA-Public Use
  Company Number: US-FreseniusKabi-FK202212784

PATIENT
  Age: 8 Month
  Sex: Male

DRUGS (25)
  1. VANCOMYCIN [Suspect]
     Active Substance: VANCOMYCIN
     Indication: Lower respiratory tract infection bacterial
  2. AZITHROMYCIN [Suspect]
     Active Substance: AZITHROMYCIN
     Indication: Lower respiratory tract infection bacterial
  3. LINEZOLID [Suspect]
     Active Substance: LINEZOLID
     Indication: Lower respiratory tract infection bacterial
     Dosage: 10MG/KG/DOSE ENTERALLY EVERY 8 HOURS
  4. MORPHINE [Suspect]
     Active Substance: MORPHINE
     Indication: Lower respiratory tract infection bacterial
     Dosage: IV INFUSIONS OF MORPHINE 50 ?G/KG/H WITH DEXMEDETOMIDINE?MORPHINE INFUSION WAS TITRATED TO 60 ?G/KG/
     Route: 042
  5. NAFCILLIN [Suspect]
     Active Substance: NAFCILLIN SODIUM
     Indication: Lower respiratory tract infection bacterial
  6. CEFEPIME [Suspect]
     Active Substance: CEFEPIME HYDROCHLORIDE
     Indication: Lower respiratory tract infection bacterial
  7. METHADONE [Suspect]
     Active Substance: METHADONE HYDROCHLORIDE
     Indication: Lower respiratory tract infection bacterial
     Dosage: ENTERAL METHADONE 0.75 MG/KG/DAY
  8. DEXMEDETOMIDINE [Suspect]
     Active Substance: DEXMEDETOMIDINE
     Indication: Lower respiratory tract infection bacterial
  9. CASPOFUNGIN [Concomitant]
     Active Substance: CASPOFUNGIN
  10. NOREPINEPHRINE [Concomitant]
     Active Substance: NOREPINEPHRINE
  11. SPIRONOLACTONE [Concomitant]
     Active Substance: SPIRONOLACTONE
     Indication: Lower respiratory tract infection bacterial
  12. FLUCONAZOLE [Concomitant]
     Active Substance: FLUCONAZOLE
     Indication: Lower respiratory tract infection bacterial
  13. MELATONIN [Concomitant]
     Active Substance: MELATONIN
     Indication: Lower respiratory tract infection bacterial
  14. LORAZEPAM [Concomitant]
     Active Substance: LORAZEPAM
     Indication: Lower respiratory tract infection bacterial
  15. LANSOPRAZOLE [Concomitant]
     Active Substance: LANSOPRAZOLE
     Indication: Lower respiratory tract infection bacterial
  16. FUROSEMIDE [Concomitant]
     Active Substance: FUROSEMIDE
     Indication: Lower respiratory tract infection bacterial
  17. CHOLECALCIFEROL [Concomitant]
     Active Substance: CHOLECALCIFEROL
     Indication: Lower respiratory tract infection bacterial
  18. CHLOROTHIAZIDE [Concomitant]
     Active Substance: CHLOROTHIAZIDE
     Indication: Lower respiratory tract infection bacterial
  19. bosentan with iron and zinc supplements. [Concomitant]
     Indication: Lower respiratory tract infection bacterial
  20. MIDAZOLAM [Concomitant]
     Active Substance: MIDAZOLAM
     Indication: Lower respiratory tract infection bacterial
  21. EPINEPHRINE [Concomitant]
     Active Substance: EPINEPHRINE
  22. HYDROCORTISONE [Concomitant]
     Active Substance: HYDROCORTISONE
  23. MEROPENEM [Concomitant]
     Active Substance: MEROPENEM
  24. CIPROFLOXACIN [Concomitant]
     Active Substance: CIPROFLOXACIN
  25. ACYCLOVIR [Concomitant]
     Active Substance: ACYCLOVIR

REACTIONS (4)
  - Drug interaction [Unknown]
  - Serotonin syndrome [Unknown]
  - Pyrexia [Unknown]
  - Leukocytosis [Unknown]
